FAERS Safety Report 7596925-9 (Version None)
Quarter: 2011Q3

REPORT INFORMATION
  Report Type: 
  Country: None (occurrence: None)
  Receive Date: 20110708
  Receipt Date: 20110630
  Transmission Date: 20111222
  Serious: Yes (Hospitalization)
  Sender: FDA-Public Use
  Company Number: DE-NOVOPROD-331132

PATIENT
  Sex: Female
  Weight: 74 kg

DRUGS (4)
  1. LEVOTHYROXINE SODIUM [Concomitant]
     Indication: AUTOIMMUNE THYROIDITIS
     Dosage: 75 MG, QD
  2. HYDROCORTISON                      /00028601/ [Concomitant]
     Dosage: 10 MG, QD
     Dates: start: 20030101
  3. SEROQUEL [Concomitant]
     Indication: PSYCHOTIC DISORDER
     Dosage: 500 MG, QD
     Dates: start: 20030101
  4. NORDITROPIN [Suspect]
     Indication: PRODUCT USED FOR UNKNOWN INDICATION
     Dosage: 0.2 MG, QD
     Route: 058
     Dates: start: 20080601, end: 20110401

REACTIONS (1)
  - ANAPLASTIC ASTROCYTOMA [None]
